FAERS Safety Report 7058606-X (Version None)
Quarter: 2010Q4

REPORT INFORMATION
  Report Type: 
  Country: None (occurrence: None)
  Receive Date: 20101022
  Receipt Date: 20101013
  Transmission Date: 20110411
  Serious: Yes (Death, Hospitalization)
  Sender: FDA-Public Use
  Company Number: B0656449A

PATIENT
  Sex: Male
  Weight: 56 kg

DRUGS (11)
  1. MARAVIROC [Suspect]
     Indication: HIV INFECTION
     Dosage: 150MG TWICE PER DAY
     Route: 048
     Dates: start: 20080325
  2. ZIDOVUDINE [Suspect]
     Indication: HIV INFECTION
     Dosage: 300MG TWICE PER DAY
     Route: 048
     Dates: start: 20080325, end: 20080421
  3. DARUNAVIR [Concomitant]
     Route: 048
     Dates: start: 20080325, end: 20080421
  4. RITONAVIR [Concomitant]
     Route: 048
     Dates: start: 20080325, end: 20080421
  5. TENOFOVIR [Concomitant]
     Route: 048
     Dates: start: 20080325, end: 20080421
  6. LAMIVUDINE-HIV [Concomitant]
     Route: 048
     Dates: start: 20080325, end: 20080421
  7. FOLINIC ACID [Concomitant]
     Route: 048
     Dates: start: 19960101
  8. DAPSONE [Concomitant]
     Route: 048
     Dates: start: 19960101
  9. PYRIMETHAMINE [Concomitant]
     Route: 048
     Dates: start: 19960101
  10. LAMOTRIGINE [Concomitant]
     Route: 048
     Dates: start: 20020101
  11. CLOBAZAM [Concomitant]
     Route: 048
     Dates: start: 20020101

REACTIONS (8)
  - ABDOMINAL PAIN [None]
  - AMNESIA [None]
  - DIARRHOEA [None]
  - FLATULENCE [None]
  - GAIT DISTURBANCE [None]
  - PANCYTOPENIA [None]
  - PYREXIA [None]
  - SEPSIS [None]
